FAERS Safety Report 24270276 (Version 3)
Quarter: 2024Q3

REPORT INFORMATION
  Report Type: Report from Study
  Country: BE (occurrence: BE)
  Receive Date: 20240830
  Receipt Date: 20240906
  Transmission Date: 20241016
  Serious: Yes (Hospitalization)
  Sender: PFIZER
  Company Number: BE-PFIZER INC-PV202300186211

PATIENT
  Age: 85 Year
  Sex: Male

DRUGS (21)
  1. SPIRONOLACTONE [Suspect]
     Active Substance: SPIRONOLACTONE
     Indication: Cardiac failure
     Dosage: 25 MG, QD
     Route: 048
     Dates: end: 20231004
  2. SPIRONOLACTONE [Suspect]
     Active Substance: SPIRONOLACTONE
     Dosage: 25 MG, QD
     Route: 048
     Dates: start: 20231006, end: 20231128
  3. ACORAMIDIS [Suspect]
     Active Substance: ACORAMIDIS
     Dosage: UNK
     Dates: start: 20220816
  4. EDOXABAN TOSYLATE [Suspect]
     Active Substance: EDOXABAN TOSYLATE
     Indication: Thrombosis prophylaxis
     Dosage: 30 MG, QD
     Route: 048
     Dates: start: 20230315, end: 20230920
  5. EDOXABAN TOSYLATE [Suspect]
     Active Substance: EDOXABAN TOSYLATE
     Dosage: 30 MG, QD
     Route: 048
     Dates: start: 20230924
  6. DAPAGLIFLOZIN [Suspect]
     Active Substance: DAPAGLIFLOZIN
     Indication: Cardiac failure
     Dosage: 10 MG, QD
     Route: 048
     Dates: start: 20230315, end: 20231004
  7. DAPAGLIFLOZIN [Suspect]
     Active Substance: DAPAGLIFLOZIN
     Dosage: 10 MG, QD
     Route: 048
     Dates: start: 20231006
  8. BUMETANIDE [Suspect]
     Active Substance: BUMETANIDE
     Indication: Cardiac failure
     Dosage: 1 MG, 1X/DAY
     Route: 048
     Dates: start: 20230927, end: 20231004
  9. BUMETANIDE [Suspect]
     Active Substance: BUMETANIDE
     Dosage: 1 MG EVERY 2 DAYS
     Dates: start: 20231006, end: 20240103
  10. ENTRESTO [Suspect]
     Active Substance: SACUBITRIL\VALSARTAN
     Dosage: 24/26 MG 0.5 DF, 2X/DAY
     Dates: end: 20231128
  11. TAMSULOSIN [Concomitant]
     Active Substance: TAMSULOSIN
     Indication: Benign prostatic hyperplasia
     Dosage: 0.4 MG, 1X/DAY
     Route: 048
     Dates: start: 20230610, end: 20231004
  12. SIMVASTATIN [Concomitant]
     Active Substance: SIMVASTATIN
     Indication: Hypercholesterolaemia
     Dosage: 20 MG, 1X/DAY
     Route: 048
     Dates: start: 2017
  13. PANTOPRAZOLE SODIUM [Concomitant]
     Active Substance: PANTOPRAZOLE SODIUM
     Indication: Prophylaxis
     Dosage: 40 MG, 1X/DAY
     Dates: start: 2009
  14. CORDARONE [Concomitant]
     Active Substance: AMIODARONE HYDROCHLORIDE
     Indication: Arrhythmia prophylaxis
     Dosage: 200 MG, 1X/DAY
     Route: 048
     Dates: start: 20230309
  15. BISOPROLOL [Concomitant]
     Active Substance: BISOPROLOL\BISOPROLOL FUMARATE
     Indication: Hypertension
     Dosage: 2.5 MG, 1X/DAY
     Route: 048
     Dates: start: 20230426
  16. 1-ALPHA LEO [Concomitant]
     Indication: Vitamin D deficiency
     Dosage: 0.25 UG, 1X/DAY
     Route: 048
     Dates: start: 20230523
  17. SODIUM BICARBONATE [Concomitant]
     Active Substance: SODIUM BICARBONATE
     Indication: Prophylaxis against dehydration
     Dosage: 1 G, 3X/DAY
     Route: 048
     Dates: start: 20230920
  18. ENTRESTO [Concomitant]
     Active Substance: SACUBITRIL\VALSARTAN
     Indication: Cardiac failure
     Dosage: 0.5 DF, 2X/DAY
     Route: 048
     Dates: start: 20230522, end: 20231004
  19. FENOTEROL HYDROBROMIDE [Concomitant]
     Active Substance: FENOTEROL HYDROBROMIDE
     Indication: Pneumonia
     Dosage: INHALATION, PER DOSE (0.1 UNIT)
     Dates: start: 20230924
  20. ARANESP [Concomitant]
     Active Substance: DARBEPOETIN ALFA
     Indication: Anaemia
     Dosage: EVERY 2 WEEKS
     Route: 058
     Dates: start: 20230921, end: 20231128
  21. ARANESP [Concomitant]
     Active Substance: DARBEPOETIN ALFA
     Dosage: 40 UG EVERY 3 WEEKS
     Dates: start: 20231130

REACTIONS (3)
  - Acute kidney injury [Recovered/Resolved]
  - Pneumonia [Recovered/Resolved]
  - Cardiac failure [Recovered/Resolved]

NARRATIVE: CASE EVENT DATE: 20231001
